FAERS Safety Report 25417702 (Version 1)
Quarter: 2025Q2

REPORT INFORMATION
  Report Type: Spontaneous
  Country: US (occurrence: US)
  Receive Date: 20250610
  Receipt Date: 20250610
  Transmission Date: 20250717
  Serious: Yes (Other)
  Sender: ROCHE
  Company Number: US-ROCHE-10000301832

PATIENT
  Sex: Female

DRUGS (1)
  1. INAVOLISIB [Suspect]
     Active Substance: INAVOLISIB
     Indication: Hormone receptor positive breast cancer
     Route: 065

REACTIONS (3)
  - Headache [Unknown]
  - Fatigue [Unknown]
  - Metastases to central nervous system [Unknown]
